FAERS Safety Report 8320489-5 (Version None)
Quarter: 2012Q2

REPORT INFORMATION
  Report Type: 
  Country: None (occurrence: None)
  Receive Date: 20120427
  Receipt Date: 20120427
  Transmission Date: 20120825
  Serious: No
  Sender: FDA-Public Use
  Company Number: None

PATIENT
  Age: 69 Year
  Sex: Male
  Weight: 89.811 kg

DRUGS (3)
  1. IPRATROPIUM BROMIDE [Suspect]
     Indication: NASAL CONGESTION
     Dosage: ONE SPRAY EACH NOSTRIL
     Route: 045
     Dates: start: 20120401, end: 20120404
  2. IPRATROPIUM BROMIDE [Suspect]
     Indication: UPPER-AIRWAY COUGH SYNDROME
     Dosage: ONE SPRAY EACH NOSTRIL
     Route: 045
     Dates: start: 20120401, end: 20120404
  3. IPRATROPIUM BROMIDE [Suspect]
     Indication: COUGH
     Dosage: ONE SPRAY EACH NOSTRIL
     Route: 045
     Dates: start: 20120401, end: 20120404

REACTIONS (8)
  - COLD SWEAT [None]
  - FALL [None]
  - ATRIAL FIBRILLATION [None]
  - PROTEIN TOTAL DECREASED [None]
  - LOSS OF CONSCIOUSNESS [None]
  - HEAD INJURY [None]
  - ELECTROLYTE IMBALANCE [None]
  - VERTIGO [None]
